FAERS Safety Report 6265036-7 (Version None)
Quarter: 2009Q3

REPORT INFORMATION
  Report Type: 
  Country: None (occurrence: None)
  Receive Date: 20090708
  Receipt Date: 20090708
  Transmission Date: 20100115
  Serious: Yes (Other)
  Sender: FDA-Public Use
  Company Number: None

PATIENT
  Sex: Male
  Weight: 82.1011 kg

DRUGS (5)
  1. LISINOPRIL [Suspect]
     Indication: HYPERTENSION
     Dosage: 10 MG TABLET DAILY ORAL W/MEAL
     Route: 048
     Dates: start: 20090327, end: 20090617
  2. STATIN [Concomitant]
  3. FISH OIL [Concomitant]
  4. MULTI-VITAMIN [Concomitant]
  5. ASPIRIN [Concomitant]

REACTIONS (6)
  - EAR INFECTION [None]
  - FACE OEDEMA [None]
  - INCREASED UPPER AIRWAY SECRETION [None]
  - INFLAMMATION [None]
  - PHARYNGITIS [None]
  - PRODUCTIVE COUGH [None]
